FAERS Safety Report 10172369 (Version 1)
Quarter: 2014Q2

REPORT INFORMATION
  Report Type: Spontaneous
  Country: BE (occurrence: BE)
  Receive Date: 20140515
  Receipt Date: 20140515
  Transmission Date: 20141212
  Serious: Yes (Other)
  Sender: FDA-Public Use
  Company Number: BE-JNJFOC-20140500516

PATIENT
  Age: 57 Year
  Sex: Male

DRUGS (2)
  1. REMICADE [Suspect]
     Indication: CROHN^S DISEASE
     Route: 042
     Dates: start: 2006
  2. AZATHIOPRINE [Suspect]
     Indication: PRODUCT USED FOR UNKNOWN INDICATION
     Route: 065
     Dates: start: 2006

REACTIONS (6)
  - Myocardial ischaemia [Unknown]
  - Mycobacterium marinum infection [Unknown]
  - Leukopenia [Unknown]
  - Type 2 diabetes mellitus [Unknown]
  - Large intestinal ulcer [Unknown]
  - Frequent bowel movements [Unknown]
